FAERS Safety Report 16697284 (Version 1)
Quarter: 2019Q3

REPORT INFORMATION
  Report Type: Spontaneous
  Country: FR (occurrence: FR)
  Receive Date: 20190813
  Receipt Date: 20190813
  Transmission Date: 20191004
  Serious: Yes (Other)
  Sender: FDA-Public Use
  Company Number: FR-PFIZER INC-2019340409

PATIENT
  Age: 65 Year
  Sex: Male
  Weight: 98 kg

DRUGS (10)
  1. KARDEGIC [Concomitant]
     Active Substance: ASPIRIN DL-LYSINE
     Dosage: 75 MG, 1X/DAY
     Route: 048
  2. MAGNE B6 [Concomitant]
     Active Substance: MAGNESIUM\PYRIDOXINE
     Dosage: 6 DF, 1X/DAY
     Dates: start: 20190627
  3. DAFALGAN [Concomitant]
     Active Substance: ACETAMINOPHEN
     Dosage: 1 G, AS NEEDED
     Route: 048
     Dates: start: 20190627
  4. AMOXICILLINE [AMOXICILLIN] [Suspect]
     Active Substance: AMOXICILLIN
     Indication: ARTHRITIS BACTERIAL
     Dosage: 9 G, 1X/DAY
     Route: 048
     Dates: start: 20190703, end: 20190715
  5. VITAMINE C [Concomitant]
     Active Substance: ASCORBIC ACID
     Dosage: 1 G, 1X/DAY
     Route: 048
     Dates: start: 20190627
  6. ACEBUTOLOL HYDROCHLORIDE. [Concomitant]
     Active Substance: ACEBUTOLOL HYDROCHLORIDE
     Dosage: 200 MG, ALTERNATE DAY
     Route: 048
  7. DALACINE [Suspect]
     Active Substance: CLINDAMYCIN
     Indication: ARTHRITIS BACTERIAL
     Dosage: 2400 MG, 1X/DAY
     Route: 048
     Dates: start: 20190703, end: 20190715
  8. ZOCOR [Concomitant]
     Active Substance: SIMVASTATIN
     Dosage: 20 MG, 1X/DAY
     Route: 048
  9. METFORMINE [METFORMIN] [Concomitant]
     Active Substance: METFORMIN HYDROCHLORIDE
     Dosage: 3000 MG, 1X/DAY
     Route: 048
  10. COAPROVEL [Concomitant]
     Active Substance: HYDROCHLOROTHIAZIDE\IRBESARTAN
     Dosage: [HYDROCHLOROTHIAZIDE 25MG/ IRBESARTAN 300MG], 1X/DAY
     Route: 048

REACTIONS (2)
  - Eyelid oedema [Recovered/Resolved]
  - Urticaria [Recovered/Resolved]

NARRATIVE: CASE EVENT DATE: 20190714
